FAERS Safety Report 17755312 (Version 2)
Quarter: 2020Q2

REPORT INFORMATION
  Report Type: Spontaneous
  Country: US (occurrence: US)
  Receive Date: 20200507
  Receipt Date: 20200508
  Transmission Date: 20200714
  Serious: Yes (Other)
  Sender: FDA-Public Use
  Company Number: US-PFIZER INC-2020182518

PATIENT
  Age: 40 Year
  Sex: Female
  Weight: 60.33 kg

DRUGS (5)
  1. CHANTIX [Suspect]
     Active Substance: VARENICLINE TARTRATE
     Dosage: 1 MG, 2X/DAY
     Dates: start: 201910, end: 2019
  2. CHANTIX [Suspect]
     Active Substance: VARENICLINE TARTRATE
     Dosage: 0.5 MG (START WEEK 0.5 MG AND THE CONTINUING WEEKS ARE 1MG TABLETS TWICE A DAY)
     Dates: start: 202001, end: 202001
  3. CHANTIX [Suspect]
     Active Substance: VARENICLINE TARTRATE
     Dosage: UNK
     Dates: start: 202004
  4. CHANTIX [Suspect]
     Active Substance: VARENICLINE TARTRATE
     Indication: SMOKING CESSATION THERAPY
     Dosage: 0.5 MG (START WEEK 0.5 MG AND THE CONTINUING WEEKS ARE 1 MG TABLETS TWICE A DAY)
     Dates: start: 201910, end: 201910
  5. CHANTIX [Suspect]
     Active Substance: VARENICLINE TARTRATE
     Dosage: 1 MG, 2X/DAY
     Dates: start: 202001, end: 20200129

REACTIONS (6)
  - Seizure [Unknown]
  - Muscle spasms [Unknown]
  - Exophthalmos [Unknown]
  - Muscle contracture [Unknown]
  - Urinary incontinence [Unknown]
  - Vomiting [Unknown]

NARRATIVE: CASE EVENT DATE: 2019
